FAERS Safety Report 7629425-8 (Version None)
Quarter: 2011Q3

REPORT INFORMATION
  Report Type: 
  Country: None (occurrence: None)
  Receive Date: 20110722
  Receipt Date: 20110713
  Transmission Date: 20111222
  Serious: Yes (Hospitalization)
  Sender: FDA-Public Use
  Company Number: US-JNJFOC-20110705932

PATIENT
  Sex: Female
  Weight: 86.18 kg

DRUGS (3)
  1. ELMIRON [Suspect]
     Route: 048
     Dates: start: 20101101
  2. ELMIRON [Suspect]
     Route: 048
     Dates: start: 20090101, end: 20101101
  3. ELMIRON [Suspect]
     Indication: CYSTITIS INTERSTITIAL
     Route: 048
     Dates: start: 19980101

REACTIONS (3)
  - TREATMENT NONCOMPLIANCE [None]
  - DRUG DOSE OMISSION [None]
  - HYSTERECTOMY [None]
